FAERS Safety Report 7417015-1 (Version None)
Quarter: 2011Q2

REPORT INFORMATION
  Report Type: 
  Country: None (occurrence: None)
  Receive Date: 20110406
  Receipt Date: 20110325
  Transmission Date: 20111010
  Serious: Yes (Hospitalization)
  Sender: FDA-Public Use
  Company Number: 1000019284

PATIENT
  Age: 77 Year
  Sex: Male

DRUGS (7)
  1. SERETIDE (SALMETEROL, FLUTICASONE) (POWDER) (SALMETEROL, FLUTICASONE) [Concomitant]
  2. FOLACIN (FOLIC ACID) (FOLIC ACID) [Concomitant]
  3. SPIRIVA (TIOTROPIUM BROMIDE) (18 MICROGRAM) (TIOTROPIUM BROMIDE) [Concomitant]
  4. TRAMADOL HCL [Concomitant]
  5. BRICANYL (TERBUTALINE) (0.5 MILLIGRAM) (TERBUTALINE) [Concomitant]
  6. ROFLUMILAST (ROFLUMILAST) (500 MICROGRAM, TABLETS) [Suspect]
     Indication: CHRONIC OBSTRUCTIVE PULMONARY DISEASE
     Dosage: 500 MCG (500 MCG,1 IN 1 D),ORAL
     Route: 048
     Dates: start: 20110101, end: 20110201
  7. BEHEPAN (CYANOCOBALAMIN) (CYANOCOBALAMIN) [Concomitant]

REACTIONS (5)
  - SUPRAVENTRICULAR TACHYCARDIA [None]
  - ELECTROCARDIOGRAM QRS COMPLEX SHORTENED [None]
  - ABDOMINAL PAIN [None]
  - PYREXIA [None]
  - CHEST PAIN [None]
